FAERS Safety Report 9789087 (Version 4)
Quarter: 2014Q1

REPORT INFORMATION
  Report Type: Spontaneous
  Country: BR (occurrence: BR)
  Receive Date: 20131230
  Receipt Date: 20140213
  Transmission Date: 20141002
  Serious: Yes (Other)
  Sender: FDA-Public Use
  Company Number: BR-ABBVIE-13P-020-1184258-00

PATIENT
  Age: 71 Year
  Sex: Female
  Weight: 56 kg

DRUGS (8)
  1. SYNTHROID [Suspect]
     Indication: THYROID DISORDER
     Route: 048
     Dates: start: 2009
  2. DEPAKOTE [Suspect]
     Indication: AFFECTIVE DISORDER
     Route: 048
     Dates: start: 2011
  3. TROMBOFOB [Suspect]
     Indication: THROMBOPHLEBITIS SUPERFICIAL
     Dosage: FORM STRENGTH: 50UI/G + 2.067 MG/G
     Route: 061
     Dates: start: 20131118, end: 20131118
  4. TROMBOFOB [Suspect]
     Indication: PRODUCT USED FOR UNKNOWN INDICATION
     Route: 061
     Dates: start: 2008
  5. CLOMENAC [Concomitant]
     Indication: DEMENTIA ALZHEIMER^S TYPE
     Route: 048
     Dates: start: 2013
  6. PANTOPRAZOLE [Concomitant]
     Indication: GASTRIC DISORDER
     Route: 048
  7. ROXETIN [Concomitant]
     Indication: DEPRESSION
     Route: 048
     Dates: start: 2009
  8. XALATAN [Concomitant]
     Indication: GLAUCOMA
     Dosage: FORM STRENGTH: 50MCG / 0.005%, 1 DROP IN EACH EYE PER DAY

REACTIONS (11)
  - Thrombosis [Recovering/Resolving]
  - Erythema [Recovered/Resolved]
  - Burning sensation [Recovered/Resolved]
  - Feeling hot [Recovered/Resolved]
  - Hot flush [Recovered/Resolved]
  - Gastric disorder [Unknown]
  - Depression [Unknown]
  - Thyroid disorder [Unknown]
  - Affective disorder [Unknown]
  - Sleep disorder [Unknown]
  - Agitation [Unknown]
